FAERS Safety Report 8977468 (Version 2)
Quarter: 2013Q3

REPORT INFORMATION
  Report Type: Report from Study
  Country: US (occurrence: US)
  Receive Date: 20121220
  Receipt Date: 20130926
  Transmission Date: 20140515
  Serious: Yes (Hospitalization, Other)
  Sender: FDA-Public Use
  Company Number: US-ALEXION-A201202431

PATIENT
  Sex: Female

DRUGS (1)
  1. SOLIRIS [Suspect]
     Indication: HAEMOLYTIC URAEMIC SYNDROME
     Dosage: 90 MG, UNK
     Route: 042

REACTIONS (4)
  - Bacterial infection [Unknown]
  - Platelet count decreased [Unknown]
  - Thrombosis in device [Unknown]
  - Intracardiac thrombus [Unknown]
